FAERS Safety Report 7965046-5 (Version None)
Quarter: 2011Q4

REPORT INFORMATION
  Report Type: 
  Country: None (occurrence: None)
  Receive Date: 20111208
  Receipt Date: 20111128
  Transmission Date: 20120403
  Serious: Yes (Other)
  Sender: FDA-Public Use
  Company Number: US-BAYER-2011-019830

PATIENT
  Age: 48 Year
  Sex: Female
  Weight: 81.633 kg

DRUGS (2)
  1. YASMIN [Suspect]
     Indication: CONTRACEPTION
     Dosage: UNK
     Dates: start: 20020101, end: 20090101
  2. OGESTREL 0.5/50-28 [Concomitant]

REACTIONS (9)
  - ABDOMINAL PAIN UPPER [None]
  - DYSPEPSIA [None]
  - CHOLELITHIASIS [None]
  - PAIN [None]
  - BILIARY COLIC [None]
  - NAUSEA [None]
  - ABDOMINAL DISTENSION [None]
  - INJURY [None]
  - CHOLECYSTITIS CHRONIC [None]
